FAERS Safety Report 4355610-7 (Version None)
Quarter: 2004Q2

REPORT INFORMATION
  Report Type: 
  Country: None (occurrence: None)
  Receive Date: 20040505
  Receipt Date: 20040422
  Transmission Date: 20050107
  Serious: Yes (Hospitalization)
  Sender: FDA-Public Use
  Company Number: 04P-062-0258642-00

PATIENT
  Sex: Male

DRUGS (1)
  1. AKINETON [Suspect]
     Indication: SUICIDE ATTEMPT
     Dosage: 2 MG X 60 TABLETS ONCE; PER ORAL
     Route: 048
     Dates: start: 20040422, end: 20040422

REACTIONS (2)
  - OVERDOSE [None]
  - SUICIDE ATTEMPT [None]
